FAERS Safety Report 22520957 (Version 1)
Quarter: 2023Q2

REPORT INFORMATION
  Report Type: Spontaneous
  Country: US (occurrence: US)
  Receive Date: 20230605
  Receipt Date: 20230605
  Transmission Date: 20230721
  Serious: Yes (Life-Threatening, Hospitalization, Other)
  Sender: FDA-Public Use
  Company Number: US-PFIZER INC-PV202300097247

PATIENT
  Age: 29 Day

DRUGS (17)
  1. LORAZEPAM [Suspect]
     Active Substance: LORAZEPAM
     Indication: Seizure
     Dosage: 0.1 MG/KG
  2. FOSPHENYTOIN SODIUM [Suspect]
     Active Substance: FOSPHENYTOIN SODIUM
     Indication: Seizure
     Dosage: 20-MG (PES)/KG
     Route: 042
  3. MIDAZOLAM [Suspect]
     Active Substance: MIDAZOLAM
     Indication: Seizure
     Dosage: 0.1 MG/KG/HR
  4. MIDAZOLAM [Suspect]
     Active Substance: MIDAZOLAM
     Dosage: 0.9 MG/KG/HR
     Route: 042
  5. KETAMINE HYDROCHLORIDE [Suspect]
     Active Substance: KETAMINE HYDROCHLORIDE
     Indication: Seizure
     Dosage: 1 MG/KG
     Route: 042
  6. KETAMINE HYDROCHLORIDE [Suspect]
     Active Substance: KETAMINE HYDROCHLORIDE
     Dosage: 1MG/KG/HR
     Route: 042
  7. KETAMINE HYDROCHLORIDE [Suspect]
     Active Substance: KETAMINE HYDROCHLORIDE
     Dosage: 0.5 MG/KG/HR
     Route: 042
  8. KETAMINE HYDROCHLORIDE [Suspect]
     Active Substance: KETAMINE HYDROCHLORIDE
     Dosage: 4.5 MG/KG/HR
     Route: 042
  9. LEVETIRACETAM [Suspect]
     Active Substance: LEVETIRACETAM
     Indication: Seizure
     Dosage: 30 MG/KG/DOSE
     Route: 042
  10. LACOSAMIDE [Suspect]
     Active Substance: LACOSAMIDE
     Indication: Seizure
     Dosage: 3 MG/KG, 2X/DAY
  11. PHENOBARBITAL [Suspect]
     Active Substance: PHENOBARBITAL
     Indication: Seizure
     Dosage: 10 MG/KG, SINGLE
     Route: 042
  12. PHENOBARBITAL [Suspect]
     Active Substance: PHENOBARBITAL
     Dosage: 30 MG/KG
     Route: 042
  13. PHENOBARBITAL [Suspect]
     Active Substance: PHENOBARBITAL
     Dosage: 1 MG/KG/HR
     Route: 042
  14. PHENOBARBITAL [Suspect]
     Active Substance: PHENOBARBITAL
     Dosage: 0.5 MG/KG/HR
     Route: 042
  15. PHENOBARBITAL [Suspect]
     Active Substance: PHENOBARBITAL
     Dosage: 10 MG/KG/DOSE
     Route: 042
  16. TOPIRAMATE [Suspect]
     Active Substance: TOPIRAMATE
     Indication: Seizure
     Dosage: UNK
  17. EPINEPHRINE [Concomitant]
     Active Substance: EPINEPHRINE
     Indication: Haemodynamic instability

REACTIONS (3)
  - Drug ineffective [Recovered/Resolved]
  - Off label use [Recovered/Resolved]
  - Drug ineffective for unapproved indication [Recovered/Resolved]
